FAERS Safety Report 21212245 (Version 4)
Quarter: 2022Q3

REPORT INFORMATION
  Report Type: Report from Study
  Country: CZ (occurrence: None)
  Receive Date: 20220815
  Receipt Date: 20220826
  Transmission Date: 20221027
  Serious: Yes (Hospitalization)
  Sender: FDA-Public Use
  Company Number: CZ-Eisai Medical Research-EC-2022-121112

PATIENT
  Age: 63 Year
  Sex: Female
  Weight: 77 kg

DRUGS (14)
  1. LENVATINIB [Suspect]
     Active Substance: LENVATINIB
     Indication: Clear cell renal cell carcinoma
     Route: 048
     Dates: start: 20220803, end: 20220808
  2. QUAVONLIMAB [Suspect]
     Active Substance: QUAVONLIMAB
     Indication: Clear cell renal cell carcinoma
     Dosage: MK-1308A (MK-1308 25MG + PEMBROLIZUMAB 400MG) IV Q6W UP TO 18 CYCLES OR PD OR DISCONTINUATION
     Route: 041
     Dates: start: 20220803, end: 20220803
  3. LEVOTHYROXINE SODIUM [Concomitant]
     Active Substance: LEVOTHYROXINE SODIUM
     Dates: start: 200701
  4. PERINDOPRIL ARGININE [Concomitant]
     Active Substance: PERINDOPRIL ARGININE
     Dates: start: 201701
  5. INDAP [Concomitant]
     Dates: start: 202202, end: 20220725
  6. AMLODIPINE [Concomitant]
     Active Substance: AMLODIPINE BESYLATE
     Dates: start: 202202, end: 20220725
  7. METFORMIN HYDROCHLORIDE [Concomitant]
     Active Substance: METFORMIN HYDROCHLORIDE
     Dates: start: 202202, end: 20220807
  8. XALATAN [Concomitant]
     Active Substance: LATANOPROST
     Dates: start: 202203
  9. LATANOPROST\TIMOLOL MALEATE [Concomitant]
     Active Substance: LATANOPROST\TIMOLOL MALEATE
     Dates: start: 202203
  10. CETIRIZINE HYDROCHLORIDE [Concomitant]
     Active Substance: CETIRIZINE HYDROCHLORIDE
     Dates: start: 20220725, end: 20220801
  11. BELODERM [BETAMETHASONE DIPROPIONATE] [Concomitant]
     Dates: start: 20220725, end: 20220807
  12. BISULEPIN [Concomitant]
     Active Substance: BISULEPIN
     Dates: start: 20220725, end: 20220808
  13. ZINC OXIDE [Concomitant]
     Active Substance: ZINC OXIDE
     Dates: start: 20220725, end: 20220807
  14. PEMBROLIZUMAB [Suspect]
     Active Substance: PEMBROLIZUMAB

REACTIONS (1)
  - Cerebral haemorrhage [Not Recovered/Not Resolved]

NARRATIVE: CASE EVENT DATE: 20220804
